FAERS Safety Report 5570701-0 (Version None)
Quarter: 2007Q4

REPORT INFORMATION
  Report Type: 
  Country: None (occurrence: None)
  Receive Date: 20071221
  Receipt Date: 20071210
  Transmission Date: 20080405
  Serious: Yes (Hospitalization)
  Sender: FDA-Public Use
  Company Number: JP-ALLERGAN-0713707US

PATIENT
  Sex: Female

DRUGS (12)
  1. BOTULINUM TOXIN TYPE A - GENERAL [Suspect]
     Indication: TORTICOLLIS
     Dosage: 60 UNITS, SINGLE
     Route: 030
     Dates: start: 20060915, end: 20060915
  2. BOTULINUM TOXIN TYPE A - GENERAL [Suspect]
     Dosage: 67.5 UNITS, SINGLE
     Route: 030
     Dates: start: 20061213, end: 20061213
  3. BOTULINUM TOXIN TYPE A - GENERAL [Suspect]
     Dosage: 80 UNITS, SINGLE
     Route: 030
     Dates: start: 20070328, end: 20070328
  4. BOTULINUM TOXIN TYPE A - GENERAL [Suspect]
     Dosage: 95 UNITS, SINGLE
     Route: 030
     Dates: start: 20070627, end: 20070627
  5. VALPROATE SODIUM [Concomitant]
     Indication: DRUG USE FOR UNKNOWN INDICATION
  6. DANTROLENE SODIUM [Concomitant]
     Indication: DRUG USE FOR UNKNOWN INDICATION
  7. DIAZEPAM [Concomitant]
     Indication: DRUG USE FOR UNKNOWN INDICATION
  8. BROMAZEPAM [Concomitant]
     Indication: DRUG USE FOR UNKNOWN INDICATION
  9. BACLOFEN [Concomitant]
     Indication: DRUG USE FOR UNKNOWN INDICATION
  10. EPERISONE HYDROCHLORIDE [Concomitant]
     Indication: DRUG USE FOR UNKNOWN INDICATION
  11. CLOBAZAM [Concomitant]
     Indication: DRUG USE FOR UNKNOWN INDICATION
  12. CARBAMAZEPINE [Concomitant]
     Indication: DRUG USE FOR UNKNOWN INDICATION

REACTIONS (3)
  - BLOOD CREATINE PHOSPHOKINASE INCREASED [None]
  - BRONCHITIS [None]
  - UPPER RESPIRATORY TRACT INFLAMMATION [None]
